FAERS Safety Report 4556786-9 (Version None)
Quarter: 2005Q1

REPORT INFORMATION
  Report Type: 
  Country: None (occurrence: None)
  Receive Date: 20050103
  Receipt Date: 20040809
  Transmission Date: 20050727
  Serious: Yes (Other)
  Sender: FDA-Public Use
  Company Number: 2004UW15003

PATIENT
  Age: 71 Year
  Sex: Male
  Weight: 85.2762 kg

DRUGS (1)
  1. CRESTOR [Suspect]
     Indication: BLOOD CHOLESTEROL INCREASED
     Dosage: 10 MG QD PO
     Route: 048
     Dates: start: 20040401, end: 20040401

REACTIONS (5)
  - ASTHENIA [None]
  - CONSTIPATION [None]
  - HERPES ZOSTER [None]
  - MYALGIA [None]
  - WEIGHT DECREASED [None]
